APPROVED DRUG PRODUCT: AMINOPHYLLINE
Active Ingredient: AMINOPHYLLINE
Strength: 25MG/ML
Dosage Form/Route: INJECTABLE;INJECTION
Application: A088407 | Product #001
Applicant: ABRAXIS PHARMACEUTICAL PRODUCTS
Approved: Jan 25, 1984 | RLD: No | RS: No | Type: DISCN